FAERS Safety Report 9425359 (Version 1)
Quarter: 2013Q3

REPORT INFORMATION
  Report Type: Spontaneous
  Country: FR (occurrence: None)
  Receive Date: 20130724
  Receipt Date: 20130724
  Transmission Date: 20140515
  Serious: Yes (Hospitalization, Other)
  Sender: FDA-Public Use
  Company Number: 2013-305

PATIENT
  Age: 32 Year
  Sex: Female

DRUGS (1)
  1. CLOZAPINE [Suspect]
     Indication: SCHIZOAFFECTIVE DISORDER BIPOLAR TYPE
     Dosage: 350-500MG, QD ORAL
     Route: 048

REACTIONS (8)
  - Schizoaffective disorder bipolar type [None]
  - Condition aggravated [None]
  - Antipsychotic drug level increased [None]
  - Parotitis [None]
  - Salivary hypersecretion [None]
  - Mumps antibody test positive [None]
  - Salivary hypersecretion [None]
  - Anaemia [None]
